FAERS Safety Report 4550957-3 (Version None)
Quarter: 2004Q4

REPORT INFORMATION
  Report Type: 
  Country: None (occurrence: None)
  Receive Date: 20041217
  Receipt Date: 20040806
  Transmission Date: 20050328
  Serious: No
  Sender: FDA-Public Use
  Company Number: 2004-BP-06605BP

PATIENT
  Age: 84 Year
  Sex: Male

DRUGS (6)
  1. SPIRIVA [Suspect]
     Indication: CHRONIC OBSTRUCTIVE AIRWAYS DISEASE
     Dosage: 18 MCG (18 MCG), IH
     Route: 055
     Dates: start: 20040723, end: 20040901
  2. ADVAIR (SERETIDE MITE) [Concomitant]
  3. IPRATROPIUM NEBULIZER (IPRATROPIUM NEBULIZER) [Concomitant]
  4. OXYGEN (OXYGEN) [Concomitant]
  5. CARDIZEM CD [Concomitant]
  6. DEMADEX [Concomitant]

REACTIONS (1)
  - DRY MOUTH [None]
